FAERS Safety Report 17649223 (Version 2)
Quarter: 2025Q2

REPORT INFORMATION
  Report Type: Spontaneous
  Country: AR (occurrence: AR)
  Receive Date: 20200409
  Receipt Date: 20250411
  Transmission Date: 20250716
  Serious: Yes (Hospitalization)
  Sender: ROCHE
  Company Number: AR-ROCHE-2572585

PATIENT
  Age: 43 Year
  Sex: Female

DRUGS (1)
  1. MABTHERA [Suspect]
     Active Substance: RITUXIMAB
     Indication: Rheumatoid arthritis
     Dosage: LAST DOSE IN NOV.2019
     Route: 042

REACTIONS (3)
  - SARS-CoV-2 test positive [Unknown]
  - Diarrhoea [Recovered/Resolved]
  - Musculoskeletal stiffness [Unknown]
